FAERS Safety Report 25060963 (Version 1)
Quarter: 2025Q1

REPORT INFORMATION
  Report Type: Spontaneous
  Country: FR (occurrence: FR)
  Receive Date: 20250310
  Receipt Date: 20250310
  Transmission Date: 20250409
  Serious: Yes (Life-Threatening, Hospitalization, Other)
  Sender: GILEAD
  Company Number: None

PATIENT
  Age: 70 Year
  Sex: Female
  Weight: 86 kg

DRUGS (1)
  1. YESCARTA [Suspect]
     Active Substance: AXICABTAGENE CILOLEUCEL
     Indication: B-cell lymphoma
     Route: 065
     Dates: start: 20210804, end: 20210804

REACTIONS (4)
  - Febrile neutropenia [Recovered/Resolved]
  - Clostridium difficile infection [Recovered/Resolved]
  - Cytokine release syndrome [Recovered/Resolved]
  - Immune effector cell-associated neurotoxicity syndrome [Not Recovered/Not Resolved]

NARRATIVE: CASE EVENT DATE: 20210804
